FAERS Safety Report 5506299-2 (Version None)
Quarter: 2007Q4

REPORT INFORMATION
  Report Type: 
  Country: None (occurrence: None)
  Receive Date: 20071102
  Receipt Date: 20071102
  Transmission Date: 20080405
  Serious: No
  Sender: FDA-Public Use
  Company Number: None

PATIENT

DRUGS (14)
  1. ZOLEDRONIC ACID [Suspect]
     Dosage: 4 MG
     Dates: start: 20070928, end: 20070928
  2. LIPITOR [Concomitant]
  3. MAGNESIUM SULFATE [Concomitant]
  4. SPIRIVA [Concomitant]
  5. SYNTHROID [Concomitant]
  6. ALBUTEROL [Concomitant]
  7. COUMADIN [Concomitant]
  8. FLOVENT [Concomitant]
  9. GLIPIZIDE [Concomitant]
  10. ISOSORBIDE DINITRATE [Concomitant]
  11. LISINOPRIL [Concomitant]
  12. PRILOSEC [Concomitant]
  13. TERAZOSIN HCL [Concomitant]
  14. VERAPAMIL [Concomitant]

REACTIONS (6)
  - BONE LESION [None]
  - DYSPNOEA [None]
  - MUSCULOSKELETAL PAIN [None]
  - OEDEMA PERIPHERAL [None]
  - PERICARDIAL EFFUSION [None]
  - PLEURAL EFFUSION [None]
